FAERS Safety Report 6406250-7 (Version None)
Quarter: 2009Q4

REPORT INFORMATION
  Report Type: 
  Country: None (occurrence: None)
  Receive Date: 20091019
  Receipt Date: 20091006
  Transmission Date: 20100525
  Serious: Yes (Other)
  Sender: FDA-Public Use
  Company Number: PHHY2009BR42997

PATIENT
  Sex: Female

DRUGS (4)
  1. DIOVAN TRIPLE [Suspect]
     Indication: HYPERTENSION
     Dosage: (160/ 12.5/ 5 MG) ONCE DAILY
     Route: 048
     Dates: start: 20090701
  2. EUTHROID-1 [Concomitant]
     Indication: THYROID DISORDER
     Dosage: UNK
  3. GLIFAGE XR [Concomitant]
     Indication: GLUCOSE TOLERANCE IMPAIRED
     Dosage: UNK
     Dates: start: 20090101
  4. RAVOTRIL [Concomitant]
     Indication: FIBROMYALGIA
     Dosage: UNK

REACTIONS (2)
  - BRAIN COMPRESSION [None]
  - SPINAL CORD OPERATION [None]
